FAERS Safety Report 16209311 (Version 1)
Quarter: 2019Q2

REPORT INFORMATION
  Report Type: Spontaneous
  Country: JP (occurrence: JP)
  Receive Date: 20190417
  Receipt Date: 20190417
  Transmission Date: 20190711
  Serious: Yes (Hospitalization, Other)
  Sender: FDA-Public Use
  Company Number: JP-AKRON, INC.-2065977

PATIENT
  Sex: Female

DRUGS (1)
  1. ZIOPTAN [Suspect]
     Active Substance: TAFLUPROST
     Indication: NORMAL TENSION GLAUCOMA
     Route: 047

REACTIONS (4)
  - Somnolence [Unknown]
  - Physical deconditioning [Unknown]
  - Dizziness [Unknown]
  - Abnormal sensation in eye [Unknown]
